FAERS Safety Report 10163719 (Version 2)
Quarter: 2014Q2

REPORT INFORMATION
  Report Type: Spontaneous
  Country: US (occurrence: US)
  Receive Date: 20140509
  Receipt Date: 20140513
  Transmission Date: 20141212
  Serious: Yes (Other)
  Sender: FDA-Public Use
  Company Number: US-GILEAD-2014-0101790

PATIENT
  Sex: Female

DRUGS (2)
  1. LETAIRIS [Suspect]
     Indication: PRODUCT USED FOR UNKNOWN INDICATION
     Dosage: 5 MG, QD
     Route: 065
     Dates: start: 20140205
  2. SILDENAFIL [Concomitant]

REACTIONS (7)
  - Dialysis [Unknown]
  - Ascites [Unknown]
  - Abdominal distension [Unknown]
  - Back pain [Unknown]
  - Swelling [Unknown]
  - Dyspnoea [Unknown]
  - Oedema peripheral [Unknown]
